FAERS Safety Report 4475858-0 (Version None)
Quarter: 2004Q4

REPORT INFORMATION
  Report Type: 
  Country: None (occurrence: None)
  Receive Date: 20041015
  Receipt Date: 20041006
  Transmission Date: 20050328
  Serious: Yes (Hospitalization, Other)
  Sender: FDA-Public Use
  Company Number: PHBS2004JP13368

PATIENT
  Age: 52 Year
  Sex: Female
  Weight: 41 kg

DRUGS (3)
  1. CYCLOSPORINE [Suspect]
     Indication: STEM CELL TRANSPLANT
     Dosage: UNK, UNK
     Route: 065
     Dates: start: 20040101, end: 20040101
  2. CYCLOSPORINE [Suspect]
     Dosage: 20 MG/DAY
     Route: 065
     Dates: start: 20040101, end: 20040722
  3. CYCLOSPORINE [Suspect]
     Dosage: 50 - 200 MG/DAY
     Route: 065
     Dates: start: 20040723

REACTIONS (4)
  - CHEST X-RAY ABNORMAL [None]
  - CRYPTOGENIC ORGANIZING PNEUMONIA [None]
  - GRAFT VERSUS HOST DISEASE [None]
  - HYPOXIA [None]
